FAERS Safety Report 15488378 (Version 1)
Quarter: 2018Q4

REPORT INFORMATION
  Report Type: Spontaneous
  Country: US (occurrence: US)
  Receive Date: 20181011
  Receipt Date: 20181011
  Transmission Date: 20190205
  Serious: No
  Sender: FDA-Public Use
  Company Number: US-ABBVIE-18K-163-2472195-00

PATIENT
  Age: 71 Year
  Sex: Male
  Weight: 73.55 kg

DRUGS (2)
  1. VENCLEXTA [Suspect]
     Active Substance: VENETOCLAX
     Dosage: TWO 50MG TABLETS ONCE A DAY
     Route: 048
     Dates: start: 201808
  2. VENCLEXTA [Suspect]
     Active Substance: VENETOCLAX
     Indication: ACUTE LEUKAEMIA
     Dosage: TOOK ONE 50MG TABLET ONCE A DAY FOR 5 DAYS
     Route: 048
     Dates: start: 20180816, end: 20180820

REACTIONS (3)
  - Middle insomnia [Not Recovered/Not Resolved]
  - Prostatomegaly [Not Recovered/Not Resolved]
  - Intentional product use issue [Unknown]

NARRATIVE: CASE EVENT DATE: 20180816
